FAERS Safety Report 5321323-8 (Version None)
Quarter: 2007Q2

REPORT INFORMATION
  Report Type: 
  Country: None (occurrence: None)
  Receive Date: 20070504
  Receipt Date: 20070423
  Transmission Date: 20071010
  Serious: Yes (Hospitalization, Other)
  Sender: FDA-Public Use
  Company Number: 07H-163-0312511-00

PATIENT
  Age: 34 Year
  Sex: Female

DRUGS (4)
  1. EPINEPHRINE [Suspect]
     Indication: DRUG USE FOR UNKNOWN INDICATION
     Dosage: NOT REPORTED, NOT REPORTED, SUBCUTANEOUS
     Route: 058
  2. PHENYTOIN [Concomitant]
  3. LORAZEPAM [Concomitant]
  4. PHENOBARBITAL TAB [Concomitant]

REACTIONS (2)
  - FACTITIOUS DISORDER [None]
  - PHAEOCHROMOCYTOMA [None]
